FAERS Safety Report 4372947-6 (Version None)
Quarter: 2004Q2

REPORT INFORMATION
  Report Type: 
  Country: None (occurrence: None)
  Receive Date: 20040603
  Receipt Date: 20040527
  Transmission Date: 20050107
  Serious: Yes (Hospitalization)
  Sender: FDA-Public Use
  Company Number: DEWYE788128MAY04

PATIENT
  Sex: Female

DRUGS (1)
  1. TREVILOR (VENLAFAXINE HYDROCHLORIDE, ATABLET, 0) [Suspect]
     Dosage: ORAL
     Route: 048

REACTIONS (1)
  - ANGLE CLOSURE GLAUCOMA [None]
